FAERS Safety Report 7486758-6 (Version None)
Quarter: 2011Q2

REPORT INFORMATION
  Report Type: 
  Country: None (occurrence: None)
  Receive Date: 20110517
  Receipt Date: 20110506
  Transmission Date: 20111010
  Serious: Yes (Hospitalization)
  Sender: FDA-Public Use
  Company Number: US-ELI_LILLY_AND_COMPANY-US201105002613

PATIENT

DRUGS (1)
  1. HUMATROPE [Suspect]
     Indication: HORMONE THERAPY
     Dosage: 0.8 MG, QD
     Route: 065
     Dates: start: 20090401

REACTIONS (5)
  - BLADDER CATHETERISATION [None]
  - URINARY TRACT INFECTION [None]
  - LUNG DISORDER [None]
  - EOSINOPHILIC PNEUMONIA CHRONIC [None]
  - EOSINOPHILIC PNEUMONIA ACUTE [None]
